FAERS Safety Report 7334929-1 (Version None)
Quarter: 2011Q1

REPORT INFORMATION
  Report Type: 
  Country: None (occurrence: None)
  Receive Date: 20110307
  Receipt Date: 20110222
  Transmission Date: 20110831
  Serious: Yes (Hospitalization)
  Sender: FDA-Public Use
  Company Number: JP-NOVOPROD-323099

PATIENT
  Age: 71 Year
  Sex: Male
  Weight: 66 kg

DRUGS (4)
  1. AMARYL [Concomitant]
     Dosage: 3 MG, QD
     Route: 048
  2. NOVORAPID CHU [Concomitant]
     Indication: PRODUCT USED FOR UNKNOWN INDICATION
     Dosage: 24 U, QD ( 8U + 8U + 8 U)
     Route: 065
     Dates: end: 20110125
  3. VICTOZA [Suspect]
     Indication: TYPE 2 DIABETES MELLITUS
     Dosage: 0.3 MG, QD
     Route: 058
     Dates: start: 20110125, end: 20110128
  4. LEVEMIR [Suspect]
     Indication: TYPE 2 DIABETES MELLITUS
     Dosage: 6 U, QD
     Route: 058

REACTIONS (3)
  - VENTRICULAR TACHYCARDIA [None]
  - GASTROINTESTINAL DISORDER [None]
  - MALAISE [None]
